FAERS Safety Report 5979075-4 (Version None)
Quarter: 2008Q4

REPORT INFORMATION
  Report Type: 
  Country: None (occurrence: None)
  Receive Date: 20081204
  Receipt Date: 20080630
  Transmission Date: 20090506
  Serious: No
  Sender: FDA-Public Use
  Company Number: US-ABBOTT-08P-163-0460280-00

PATIENT
  Sex: Female
  Weight: 113.5 kg

DRUGS (5)
  1. TRICOR [Suspect]
     Indication: BLOOD CHOLESTEROL
     Route: 048
     Dates: start: 20080519
  2. ATORVASTATIN CALCIUM [Concomitant]
     Indication: BLOOD CHOLESTEROL
     Route: 048
     Dates: start: 19960101
  3. QUETIAPINE FUMARATE [Concomitant]
     Indication: INSOMNIA
     Route: 048
     Dates: start: 20010101
  4. ESCITALOPRAM OXALATE [Concomitant]
     Indication: DRUG USE FOR UNKNOWN INDICATION
     Route: 048
     Dates: start: 20071201
  5. LAMOTRIGINE [Concomitant]
     Indication: DRUG USE FOR UNKNOWN INDICATION
     Dosage: 200MG IN MORNING AND 100MG AT NIGHT TIME
     Route: 048
     Dates: start: 20020101

REACTIONS (1)
  - FOOD CRAVING [None]
